FAERS Safety Report 4379798-7 (Version None)
Quarter: 2004Q2

REPORT INFORMATION
  Report Type: 
  Country: None (occurrence: None)
  Receive Date: 20040617
  Receipt Date: 20010524
  Transmission Date: 20050107
  Serious: Yes (Hospitalization)
  Sender: FDA-Public Use
  Company Number: CA-ROCHE-261041

PATIENT
  Age: 46 Year
  Sex: Female
  Weight: 98.6 kg

DRUGS (16)
  1. MYCOPHENOLATE MOFETIL [Suspect]
     Route: 065
     Dates: start: 20010509
  2. MYCOPHENOLATE MOFETIL [Suspect]
     Route: 065
  3. DACLIZUMAB [Suspect]
     Route: 042
  4. PREDNISONE [Suspect]
     Route: 065
     Dates: start: 20010513
  5. PREDNISONE [Suspect]
     Route: 065
     Dates: start: 20010508
  6. PREDNISONE [Suspect]
     Route: 065
     Dates: start: 20010511
  7. PREDNISONE [Suspect]
     Route: 065
     Dates: start: 20010615
  8. PROGRAF [Suspect]
     Route: 065
     Dates: start: 20010508
  9. PROGRAF [Suspect]
     Route: 065
     Dates: start: 20010515
  10. PROGRAF [Suspect]
     Route: 065
     Dates: start: 20010529
  11. PROGRAF [Suspect]
     Route: 065
     Dates: start: 20010617
  12. SIROLIMUS [Suspect]
     Route: 065
     Dates: start: 20030513
  13. LOSEC [Concomitant]
  14. THYROXINE [Concomitant]
  15. GANCICLOVIR [Concomitant]
     Dates: start: 20010608
  16. COUMADIN [Concomitant]
     Dates: start: 20010627

REACTIONS (6)
  - DEEP VEIN THROMBOSIS [None]
  - IMPAIRED GASTRIC EMPTYING [None]
  - INFLUENZA LIKE ILLNESS [None]
  - PANCREATIC NECROSIS [None]
  - PORTAL VEIN THROMBOSIS [None]
  - SUBCLAVIAN VEIN THROMBOSIS [None]
